FAERS Safety Report 15029771 (Version 2)
Quarter: 2018Q3

REPORT INFORMATION
  Report Type: Report from Study
  Country: US (occurrence: US)
  Receive Date: 20180619
  Receipt Date: 20180719
  Transmission Date: 20181010
  Serious: Yes (Other)
  Sender: FDA-Public Use
  Company Number: PHEH2018US022571

PATIENT
  Age: 54 Year
  Sex: Male
  Weight: 97.51 kg

DRUGS (2)
  1. COSENTYX [Suspect]
     Active Substance: SECUKINUMAB
     Indication: PSORIASIS
  2. COSENTYX [Suspect]
     Active Substance: SECUKINUMAB
     Indication: PSORIATIC ARTHROPATHY
     Dosage: 300 MG, Q4W
     Route: 058
     Dates: start: 201705, end: 20180531

REACTIONS (9)
  - Benign neoplasm of thyroid gland [Not Recovered/Not Resolved]
  - Dizziness [Not Recovered/Not Resolved]
  - Stomatitis [Not Recovered/Not Resolved]
  - Viral pharyngitis [Not Recovered/Not Resolved]
  - Tongue erythema [Not Recovered/Not Resolved]
  - Tongue disorder [Not Recovered/Not Resolved]
  - Oropharyngeal pain [Not Recovered/Not Resolved]
  - Gingival disorder [Not Recovered/Not Resolved]
  - Gingival erythema [Not Recovered/Not Resolved]

NARRATIVE: CASE EVENT DATE: 20180115
